FAERS Safety Report 21393153 (Version 2)
Quarter: 2022Q4

REPORT INFORMATION
  Report Type: Spontaneous
  Country: FR (occurrence: FR)
  Receive Date: 20220929
  Receipt Date: 20221018
  Transmission Date: 20230112
  Serious: No
  Sender: FDA-Public Use
  Company Number: FR-GRUNENTHAL-2022-102796

PATIENT
  Age: 43 Year
  Sex: Female

DRUGS (1)
  1. QUTENZA [Suspect]
     Active Substance: CAPSAICIN
     Indication: Neuralgia
     Dosage: UNK
     Route: 065
     Dates: start: 20220330, end: 20220330

REACTIONS (2)
  - Maternal exposure during pregnancy [Unknown]
  - Thermal burn [Unknown]

NARRATIVE: CASE EVENT DATE: 20220301
